FAERS Safety Report 8152181-4 (Version None)
Quarter: 2012Q1

REPORT INFORMATION
  Report Type: 
  Country: None (occurrence: None)
  Receive Date: 20120214
  Receipt Date: 20120201
  Transmission Date: 20120608
  Serious: Yes (Other)
  Sender: FDA-Public Use
  Company Number: JP-2011-11276

PATIENT
  Age: 85 Year
  Sex: Male
  Weight: 41 kg

DRUGS (9)
  1. DOPAMINE HYDROCHLORIDE [Concomitant]
  2. DOBUPUM (DOBUTAMINE HYDROCHLORIDE) [Concomitant]
  3. LASIX [Concomitant]
  4. RABEPRAZOLE SODIUM [Concomitant]
  5. HEPARIN AND PREPARATIONS (HEPARIN AND PREPARATIONS) [Concomitant]
  6. CEFTRIAXONE NA (CEFTRIAXONE NA) [Concomitant]
  7. ASPIRIN [Concomitant]
  8. ARTIST (CARVEDILO) [Concomitant]
  9. SAMSCA [Suspect]
     Indication: CARDIAC FAILURE
     Dosage: 7.5 MG MILLIGRAM(S), QD, ORAL
     Route: 048
     Dates: start: 20110426, end: 20110428

REACTIONS (1)
  - HYPERNATRAEMIA [None]
